FAERS Safety Report 14954625 (Version 1)
Quarter: 2018Q2

REPORT INFORMATION
  Report Type: Spontaneous
  Country: US (occurrence: US)
  Receive Date: 20180530
  Receipt Date: 20180530
  Transmission Date: 20180711
  Serious: Yes (Hospitalization, Other)
  Sender: FDA-Public Use
  Company Number: US-GLAXOSMITHKLINE-US2018096034

PATIENT
  Age: 90 Year
  Sex: Female

DRUGS (5)
  1. RYTHMOL SR [Suspect]
     Active Substance: PROPAFENONE HYDROCHLORIDE
     Indication: ATRIAL FIBRILLATION
     Dosage: 225 MG, BID
     Route: 048
  2. CODEINE [Concomitant]
     Active Substance: CODEINE
  3. CALCIUM [Concomitant]
     Active Substance: CALCIUM
  4. METOPROLOL. [Concomitant]
     Active Substance: METOPROLOL
  5. ACETAMINOPHEN. [Concomitant]
     Active Substance: ACETAMINOPHEN

REACTIONS (2)
  - Gastrointestinal disorder [Recovered/Resolved]
  - Gastrointestinal haemorrhage [Recovered/Resolved]

NARRATIVE: CASE EVENT DATE: 20180522
